FAERS Safety Report 26132067 (Version 1)
Quarter: 2025Q4

REPORT INFORMATION
  Report Type: Spontaneous
  Country: US (occurrence: US)
  Receive Date: 20251208
  Receipt Date: 20251208
  Transmission Date: 20260117
  Serious: No
  Sender: ABBVIE
  Company Number: US-ABBVIE-6574706

PATIENT
  Age: 28 Year
  Sex: Female
  Weight: 91.172 kg

DRUGS (7)
  1. LILETTA [Suspect]
     Active Substance: LEVONORGESTREL
     Indication: Product used for unknown indication
     Dosage: TIME INTERVAL: AS NECESSARY
     Route: 015
     Dates: start: 20251114
  2. SERTRALINE [Concomitant]
     Active Substance: SERTRALINE HYDROCHLORIDE
     Indication: Product used for unknown indication
     Dosage: QUANTITY: 30?REFILLS: 4
     Route: 048
     Dates: start: 20230320
  3. SLYND [Concomitant]
     Active Substance: DROSPIRENONE
     Indication: Product used for unknown indication
     Dosage: QUANTITY: 28?REFILLS: 4
     Route: 048
     Dates: start: 20230320
  4. SENNA [Concomitant]
     Active Substance: SENNOSIDES
     Indication: Constipation
     Dosage: 1 OR 2 TABLET AT NIGHT,?QUANTITY: 60?REFILL: 3
     Route: 048
     Dates: start: 20221108
  5. IBUPROFEN [Concomitant]
     Active Substance: IBUPROFEN
     Indication: Pain
     Dosage: QUALITY:40?REFILL: 0?TAKE ONE TABLET FOR EVERY SIX TO EIGHT HOURS, AS NEEDED.
     Route: 048
     Dates: start: 20221108
  6. FERROUS SULFATE [Concomitant]
     Active Substance: FERROUS SULFATE
     Indication: Product used for unknown indication
     Dosage: ONE TABLET EVERY OTHER DAY,?ONE TABLET EVERY OTHER DAY WITH MEALS,?QUANTITY: 15?REFILL: 3
     Route: 048
     Dates: start: 20220829
  7. PYRIDOXINE [Concomitant]
     Active Substance: PYRIDOXINE
     Indication: Nausea
     Dosage: TIME INTERVAL: 0.33333333 DAYS: QUANTITY: 90?REFILL: 3
     Route: 048
     Dates: start: 20220519

REACTIONS (2)
  - Blood pressure abnormal [Unknown]
  - Device expulsion [Unknown]

NARRATIVE: CASE EVENT DATE: 20250101
